FAERS Safety Report 24298759 (Version 1)
Quarter: 2024Q3

REPORT INFORMATION
  Report Type: Spontaneous
  Country: CN (occurrence: CN)
  Receive Date: 20240909
  Receipt Date: 20240909
  Transmission Date: 20241017
  Serious: Yes (Life-Threatening, Hospitalization, Other)
  Sender: SANOFI AVENTIS
  Company Number: CN-SA-2024SA258556

PATIENT
  Age: 31 Year
  Sex: Male
  Weight: 54 kg

DRUGS (2)
  1. OXALIPLATIN [Suspect]
     Active Substance: OXALIPLATIN
     Indication: Small intestine carcinoma
     Dosage: 130.000MG 1X
     Route: 041
     Dates: start: 20240902, end: 20240902
  2. DEXTROSE [Concomitant]
     Active Substance: DEXTROSE\DEXTROSE MONOHYDRATE
     Indication: Vehicle solution use
     Dosage: 250.000ML 1X
     Route: 041
     Dates: start: 20240902, end: 20240902

REACTIONS (4)
  - Anaphylactic shock [Recovering/Resolving]
  - Loss of consciousness [Unknown]
  - Hyperhidrosis [Unknown]
  - Blood pressure decreased [Unknown]

NARRATIVE: CASE EVENT DATE: 20240902
